FAERS Safety Report 5776068-7 (Version None)
Quarter: 2008Q2

REPORT INFORMATION
  Report Type: 
  Country: None (occurrence: None)
  Receive Date: 20080613
  Receipt Date: 20080529
  Transmission Date: 20081010
  Serious: Yes (Death)
  Sender: FDA-Public Use
  Company Number: S08-MYS-01959-01

PATIENT
  Age: 42 Year
  Sex: Female

DRUGS (1)
  1. LEXAPRO [Suspect]
     Indication: DYSTHYMIC DISORDER
     Dates: start: 20060215

REACTIONS (2)
  - DRUG TOXICITY [None]
  - HEPATIC STEATOSIS [None]
